FAERS Safety Report 17669426 (Version 1)
Quarter: 2020Q2

REPORT INFORMATION
  Report Type: Spontaneous
  Country: ES (occurrence: ES)
  Receive Date: 20200415
  Receipt Date: 20200415
  Transmission Date: 20200713
  Serious: Yes (Life-Threatening, Hospitalization)
  Sender: FDA-Public Use
  Company Number: ES-TEVA-2020-ES-1223070

PATIENT
  Age: 44 Year
  Sex: Male

DRUGS (5)
  1. PERMIXON [SERENOA REPENS] [Suspect]
     Active Substance: HERBALS\SAW PALMETTO
     Indication: SUICIDE ATTEMPT
     Dosage: 2400 MG
     Route: 048
     Dates: start: 20200305, end: 20200305
  2. PARACETAMOL (12A) [Suspect]
     Active Substance: ACETAMINOPHEN
     Indication: SUICIDE ATTEMPT
     Dosage: 61 G
     Route: 048
     Dates: start: 20200305, end: 20200305
  3. DEXKETOPROFENO (7312A) [Suspect]
     Active Substance: DEXKETOPROFEN
     Indication: SUICIDE ATTEMPT
     Dosage: 500 MG
     Route: 048
     Dates: start: 20200305, end: 20200305
  4. IBUPROFENO (1769A) [Suspect]
     Active Substance: IBUPROFEN
     Indication: SUICIDE ATTEMPT
     Dosage: 24 G
     Route: 048
     Dates: start: 20200305, end: 20200305
  5. OMEPRAZOL (2141A) [Suspect]
     Active Substance: OMEPRAZOLE
     Indication: SUICIDE ATTEMPT
     Dosage: 300 MG
     Route: 048
     Dates: start: 20200305, end: 20200305

REACTIONS (3)
  - Vomiting [Recovered/Resolved]
  - Bradyphrenia [Recovered/Resolved]
  - Metabolic acidosis [Recovered/Resolved]

NARRATIVE: CASE EVENT DATE: 20200305
